FAERS Safety Report 8045698-4 (Version None)
Quarter: 2012Q1

REPORT INFORMATION
  Report Type: 
  Country: None (occurrence: None)
  Receive Date: 20120113
  Receipt Date: 20120109
  Transmission Date: 20120608
  Serious: Yes (Hospitalization)
  Sender: FDA-Public Use
  Company Number: IL-AMGEN-ISRSP2012001066

PATIENT
  Age: 69 Year
  Sex: Male

DRUGS (6)
  1. NEULASTA [Suspect]
     Indication: CHEMOTHERAPY
     Dosage: 6 MG, AFTER CHEMO
  2. CISPLATIN [Concomitant]
     Indication: SMALL CELL LUNG CANCER STAGE UNSPECIFIED
     Dosage: 80 MG/M2, Q3WK
     Route: 042
  3. ETOPOSIDE [Concomitant]
  4. NEULASTA [Suspect]
     Dosage: 36 MG, UNK
  5. CISPLATIN [Concomitant]
  6. ETOPOSIDE [Concomitant]
     Indication: SMALL CELL LUNG CANCER STAGE UNSPECIFIED
     Dosage: 100 MG/M2, Q3WK
     Route: 042

REACTIONS (4)
  - LEUKOCYTOSIS [None]
  - BONE PAIN [None]
  - ACCIDENTAL OVERDOSE [None]
  - RHINORRHOEA [None]
